FAERS Safety Report 10142738 (Version 1)
Quarter: 2014Q2

REPORT INFORMATION
  Report Type: Spontaneous
  Country: DE (occurrence: None)
  Receive Date: 20140425
  Receipt Date: 20140425
  Transmission Date: 20141212
  Serious: Yes (Hospitalization)
  Sender: FDA-Public Use
  Company Number: DE-20140079

PATIENT
  Age: 28 Year
  Sex: Female

DRUGS (1)
  1. DOTAREM (UNI-DOSE VITAL) (GADOTERIC ACID), 13GD098A) [Suspect]
     Route: 042

REACTIONS (6)
  - Anaphylactic reaction [None]
  - Lip oedema [None]
  - Dysphonia [None]
  - Nausea [None]
  - Vomiting [None]
  - Hot flush [None]
